FAERS Safety Report 11285106 (Version 1)
Quarter: 2015Q3

REPORT INFORMATION
  Report Type: Spontaneous
  Country: US (occurrence: US)
  Receive Date: 20150720
  Receipt Date: 20150720
  Transmission Date: 20151125
  Serious: No
  Sender: FDA-Public Use
  Company Number: US-TAKEDA-2015TUS002790

PATIENT
  Age: 30 Year
  Sex: Male
  Weight: 86.17 kg

DRUGS (5)
  1. 6-MP [Suspect]
     Active Substance: MERCAPTOPURINE
     Dosage: UNK
     Route: 065
  2. PREDNISONE. [Suspect]
     Active Substance: PREDNISONE
     Indication: COLITIS ULCERATIVE
  3. PREDNISONE. [Suspect]
     Active Substance: PREDNISONE
     Indication: COLITIS ULCERATIVE
     Dosage: 40 MG TAPPER
     Route: 065
     Dates: start: 20141111, end: 201502
  4. ENTYVIO [Suspect]
     Active Substance: VEDOLIZUMAB
     Indication: COLITIS ULCERATIVE
     Dosage: 300 MG, Q8WEEKS
     Route: 065
     Dates: start: 20141120
  5. 6-MP [Suspect]
     Active Substance: MERCAPTOPURINE
     Indication: COLITIS ULCERATIVE
     Dosage: 50 MG, QD
     Route: 065
     Dates: start: 20141112

REACTIONS (1)
  - Erythema [Not Recovered/Not Resolved]

NARRATIVE: CASE EVENT DATE: 20150121
